FAERS Safety Report 4444227-1 (Version None)
Quarter: 2004Q3

REPORT INFORMATION
  Report Type: 
  Country: None (occurrence: None)
  Receive Date: 20040902
  Receipt Date: 20040818
  Transmission Date: 20050211
  Serious: Yes (Hospitalization)
  Sender: FDA-Public Use
  Company Number: A03200402800

PATIENT
  Age: 51 Year
  Sex: Male
  Weight: 63.5036 kg

DRUGS (33)
  1. AMBIEN [Suspect]
     Dosage: ORAL
     Route: 048
  2. ARANESP [Suspect]
     Indication: ANAEMIA OF MALIGNANT DISEASE
     Dosage: SUBCUTANEOUS
     Route: 058
     Dates: start: 20030821
  3. MARINOL [Suspect]
  4. KYTRIL [Suspect]
     Dosage: 1 MG QD - INTRAVENOUS NOS
     Route: 042
     Dates: start: 20030828, end: 20030828
  5. OXYCONTIN [Suspect]
     Dosage: 20 MG Q12HR
     Dates: start: 20030806, end: 20030905
  6. NEURONTIN [Suspect]
  7. ARICEPT [Suspect]
  8. MORPHINE SULFATE [Concomitant]
  9. CHLORPROMAZINE [Concomitant]
  10. OXYCODONE HCL [Concomitant]
  11. TACROLIMUS [Concomitant]
  12. PANTOPRAZOLE [Concomitant]
  13. DEFLAZACORT [Concomitant]
  14. SERTRALINE HYDROCHLORIDE [Concomitant]
  15. GLIPIZIDE [Concomitant]
  16. NIFEDIPINE [Concomitant]
  17. MAGNESIUM [Concomitant]
  18. LEVOFLOXACIN [Concomitant]
  19. PENTAMIDINE [Concomitant]
  20. PERI-COLACE [Concomitant]
  21. BISACODYL [Concomitant]
  22. ACETYLSALICYLIC ACID [Concomitant]
  23. FUROSEMIDE [Concomitant]
  24. SARGRAMOSTIM [Concomitant]
  25. DEXAMETHASONE [Concomitant]
  26. DOXORUBICIN HCL [Concomitant]
  27. CISPLATIN [Concomitant]
  28. SENNA FRUIT [Concomitant]
  29. PROPRANOLOL HYDROCHLORIDE [Concomitant]
  30. MULTI-VITAMINS [Concomitant]
  31. INSULIN [Concomitant]
  32. SPIRONOLACTONE [Concomitant]
  33. MEGESTROL ACETATE [Concomitant]

REACTIONS (13)
  - ASTHENIA [None]
  - CONFUSIONAL STATE [None]
  - CONTUSION [None]
  - CONVULSION [None]
  - FACE INJURY [None]
  - FALL [None]
  - FATIGUE [None]
  - GASTROINTESTINAL HAEMORRHAGE [None]
  - HAEMOLYTIC ANAEMIA [None]
  - LIVER TRANSPLANT REJECTION [None]
  - METABOLIC ENCEPHALOPATHY [None]
  - PANCYTOPENIA [None]
  - SWELLING [None]
